FAERS Safety Report 17920064 (Version 1)
Quarter: 2020Q2

REPORT INFORMATION
  Report Type: Spontaneous
  Country: AR (occurrence: AR)
  Receive Date: 20200620
  Receipt Date: 20200620
  Transmission Date: 20200714
  Serious: Yes (Other)
  Sender: FDA-Public Use
  Company Number: AR-AMGEN-ARGSP2020098667

PATIENT
  Age: 69 Year
  Sex: Female

DRUGS (1)
  1. ENBREL [Suspect]
     Active Substance: ETANERCEPT
     Indication: RHEUMATOID ARTHRITIS
     Dosage: 50 MG, WEEKLY
     Route: 065
     Dates: start: 20130710

REACTIONS (9)
  - Injection site pain [Recovered/Resolved]
  - Fall [Recovered/Resolved]
  - Alopecia [Recovered/Resolved]
  - Patella fracture [Recovered/Resolved]
  - Joint injury [Recovered/Resolved]
  - Wrist deformity [Recovered/Resolved]
  - Swelling [Recovered/Resolved]
  - Limb injury [Recovered/Resolved]
  - Weight increased [Recovered/Resolved]

NARRATIVE: CASE EVENT DATE: 2019
